FAERS Safety Report 6707285-7 (Version None)
Quarter: 2010Q2

REPORT INFORMATION
  Report Type: 
  Country: None (occurrence: None)
  Receive Date: 20100503
  Receipt Date: 20090918
  Transmission Date: 20101027
  Serious: No
  Sender: FDA-Public Use
  Company Number: US-ASTRAZENECA-2009SE14127

PATIENT
  Age: 734 Month
  Sex: Female

DRUGS (6)
  1. NEXIUM [Suspect]
     Route: 048
     Dates: start: 20090801
  2. DIVIGEL [Suspect]
     Indication: HOT FLUSH
     Dosage: 0.1%, 0.25MG ONCE DAILY
     Route: 061
     Dates: start: 20090801
  3. PROMETRIUM [Suspect]
     Indication: MENOPAUSE
     Dosage: 1 IN 1 DAY
     Route: 048
     Dates: start: 20090801
  4. MAXZIDE [Concomitant]
  5. PSEUDOEPHEDRINE [Concomitant]
  6. BENADRYL [Concomitant]

REACTIONS (3)
  - ALOPECIA [None]
  - CONDITION AGGRAVATED [None]
  - VITREOUS FLOATERS [None]
